FAERS Safety Report 18612771 (Version 2)
Quarter: 2021Q2

REPORT INFORMATION
  Report Type: Spontaneous
  Country: US (occurrence: US)
  Receive Date: 20201214
  Receipt Date: 20210419
  Transmission Date: 20210717
  Serious: Yes (Other)
  Sender: FDA-Public Use
  Company Number: US-ELI_LILLY_AND_COMPANY-US202012002499

PATIENT
  Age: 65 Year
  Sex: Female
  Weight: 54.42 kg

DRUGS (1)
  1. BAMLANIVIMAB 700MG [Suspect]
     Active Substance: BAMLANIVIMAB
     Indication: COVID-19
     Dosage: UNK UNK, UNKNOWN
     Route: 042
     Dates: start: 20201122, end: 20201122

REACTIONS (14)
  - Mobility decreased [Recovering/Resolving]
  - Pain [Not Recovered/Not Resolved]
  - Asthenia [Recovered/Resolved]
  - Thrombosis [Unknown]
  - Joint stiffness [Recovering/Resolving]
  - Joint swelling [Recovered/Resolved]
  - Renal failure [Unknown]
  - Headache [Recovered/Resolved]
  - Fatigue [Recovering/Resolving]
  - Tremor [Recovered/Resolved]
  - Musculoskeletal stiffness [Recovering/Resolving]
  - Inflammation [Not Recovered/Not Resolved]
  - Pain in extremity [Unknown]
  - Peripheral swelling [Recovered/Resolved]

NARRATIVE: CASE EVENT DATE: 202011
